FAERS Safety Report 10230851 (Version 1)
Quarter: 2014Q2

REPORT INFORMATION
  Report Type: Spontaneous
  Country: US (occurrence: US)
  Receive Date: 20140611
  Receipt Date: 20140611
  Transmission Date: 20141212
  Serious: No
  Sender: FDA-Public Use
  Company Number: US-BAYER-2014-085369

PATIENT
  Sex: Female

DRUGS (2)
  1. ULTRAVIST [Suspect]
     Indication: COMPUTERISED TOMOGRAM
     Dosage: 110 UNK, ONCE
  2. ULTRAVIST [Suspect]
     Indication: ANGIOGRAM PULMONARY

REACTIONS (2)
  - Urticaria [None]
  - Dyspnoea [None]
